FAERS Safety Report 5658261-7 (Version None)
Quarter: 2008Q1

REPORT INFORMATION
  Report Type: 
  Country: None (occurrence: None)
  Receive Date: 20080310
  Receipt Date: 20070215
  Transmission Date: 20080703
  Serious: Yes (Life-Threatening)
  Sender: FDA-Public Use
  Company Number: US-BAYER-200710196BCC

PATIENT
  Age: 61 Year
  Sex: Female
  Weight: 77 kg

DRUGS (5)
  1. ALEVE [Suspect]
     Indication: ARTHRALGIA
     Dosage: UNIT DOSE: 220 MG
     Route: 048
  2. ALEVE [Suspect]
     Dosage: UNIT DOSE: 220 MG
     Route: 048
     Dates: start: 20070116, end: 20070116
  3. PREMARIN [Concomitant]
  4. LEXAPRO [Concomitant]
  5. PRINIVIL [Concomitant]

REACTIONS (13)
  - ANAPHYLACTIC SHOCK [None]
  - DIZZINESS [None]
  - ERYTHEMA [None]
  - FACE OEDEMA [None]
  - HEART RATE DECREASED [None]
  - HYPERSENSITIVITY [None]
  - HYPOTENSION [None]
  - PAIN IN EXTREMITY [None]
  - PRURITUS [None]
  - PULSE ABNORMAL [None]
  - RASH MACULO-PAPULAR [None]
  - SKIN BURNING SENSATION [None]
  - URTICARIA [None]
